FAERS Safety Report 6369906-0 (Version None)
Quarter: 2009Q3

REPORT INFORMATION
  Report Type: 
  Country: None (occurrence: None)
  Receive Date: 20090923
  Receipt Date: 20070521
  Transmission Date: 20100115
  Serious: Yes (Other)
  Sender: FDA-Public Use
  Company Number: US-ASTRAZENECA-2006UW11179

PATIENT
  Age: 35 Year
  Sex: Female
  Weight: 126.2 kg

DRUGS (33)
  1. SEROQUEL [Suspect]
     Indication: ANXIETY
     Route: 048
     Dates: start: 20050301
  2. SEROQUEL [Suspect]
     Indication: DEPRESSION
     Route: 048
     Dates: start: 20050301
  3. SEROQUEL [Suspect]
     Indication: SLEEP DISORDER
     Route: 048
     Dates: start: 20050301
  4. SEROQUEL [Suspect]
     Indication: BIPOLAR I DISORDER
     Route: 048
     Dates: start: 20050301
  5. SEROQUEL [Suspect]
     Route: 048
     Dates: start: 20050201
  6. SEROQUEL [Suspect]
     Route: 048
     Dates: start: 20050201
  7. SEROQUEL [Suspect]
     Route: 048
     Dates: start: 20050201
  8. SEROQUEL [Suspect]
     Route: 048
     Dates: start: 20050201
  9. SEROQUEL [Suspect]
     Route: 048
     Dates: start: 20060522
  10. SEROQUEL [Suspect]
     Route: 048
     Dates: start: 20060522
  11. SEROQUEL [Suspect]
     Route: 048
     Dates: start: 20060522
  12. SEROQUEL [Suspect]
     Route: 048
     Dates: start: 20060522
  13. SEROQUEL [Suspect]
     Dosage: 600 MG AT BEDTIME AND 25 MG THREE TIMES A DAY
     Route: 048
     Dates: start: 20061225
  14. SEROQUEL [Suspect]
     Dosage: 600 MG AT BEDTIME AND 25 MG THREE TIMES A DAY
     Route: 048
     Dates: start: 20061225
  15. SEROQUEL [Suspect]
     Dosage: 600 MG AT BEDTIME AND 25 MG THREE TIMES A DAY
     Route: 048
     Dates: start: 20061225
  16. SEROQUEL [Suspect]
     Dosage: 600 MG AT BEDTIME AND 25 MG THREE TIMES A DAY
     Route: 048
     Dates: start: 20061225
  17. SEROQUEL [Suspect]
     Dosage: 25 MG THREE TIMES A DAY
     Route: 048
     Dates: start: 20070318
  18. SEROQUEL [Suspect]
     Dosage: 25 MG THREE TIMES A DAY
     Route: 048
     Dates: start: 20070318
  19. SEROQUEL [Suspect]
     Dosage: 25 MG THREE TIMES A DAY
     Route: 048
     Dates: start: 20070318
  20. SEROQUEL [Suspect]
     Dosage: 25 MG THREE TIMES A DAY
     Route: 048
     Dates: start: 20070318
  21. GEODON [Concomitant]
     Indication: BIPOLAR I DISORDER
     Dosage: 40 MG TO 80 MG DAILY
     Dates: start: 20061225
  22. GEODON [Concomitant]
     Dosage: 20-50 MG
  23. CLONAZEPAM [Concomitant]
     Dosage: 0.5 MG ONCE DAILY TO 2 MG FOUR TIMES A DAY
     Dates: start: 20061210
  24. CLONAZEPAM [Concomitant]
     Dates: start: 20070318
  25. ZOLOFT [Concomitant]
     Indication: BIPOLAR I DISORDER
     Dates: start: 20051130
  26. ZOLOFT [Concomitant]
     Dates: start: 20060323
  27. ZOLOFT [Concomitant]
     Dates: start: 20061225
  28. ZOLOFT [Concomitant]
     Dates: start: 20070123
  29. LORTAB [Concomitant]
     Dosage: 5 BY 500 ONCE PER ORAL EVERY 12 TO 20 HOURS
     Route: 048
     Dates: start: 20051213
  30. NAPROSYN [Concomitant]
     Dates: start: 20051213
  31. NAPROSYN [Concomitant]
     Dosage: AS REQUIRED
     Dates: start: 20060328
  32. KLONOPIN [Concomitant]
     Indication: BIPOLAR I DISORDER
     Dates: start: 20060323
  33. KLONOPIN [Concomitant]
     Dates: start: 20070123

REACTIONS (6)
  - DIABETES MELLITUS [None]
  - DIABETES MELLITUS INADEQUATE CONTROL [None]
  - PANCREATITIS [None]
  - SKIN ULCER [None]
  - TYPE 2 DIABETES MELLITUS [None]
  - ULCER [None]
